FAERS Safety Report 9181767 (Version 1)
Quarter: 2013Q1

REPORT INFORMATION
  Report Type: Spontaneous
  Country: US (occurrence: US)
  Receive Date: 20130322
  Receipt Date: 20130322
  Transmission Date: 20140127
  Serious: No
  Sender: FDA-Public Use
  Company Number: US-PFIZER INC-2013091687

PATIENT
  Age: 60 Year
  Sex: Female
  Weight: 56.69 kg

DRUGS (4)
  1. VANCOMYCIN HCL [Suspect]
     Indication: STAPHYLOCOCCAL SEPSIS
     Dosage: 1500 MG, 2X/DAY
     Route: 042
     Dates: start: 201301, end: 201301
  2. VANCOMYCIN HCL [Suspect]
     Indication: PNEUMONIA STAPHYLOCOCCAL
  3. NEURONTIN [Concomitant]
     Dosage: UNK
  4. METOPROLOL [Concomitant]
     Dosage: UNK

REACTIONS (1)
  - Drug hypersensitivity [Unknown]
